FAERS Safety Report 8969736 (Version 1)
Quarter: 2012Q4

REPORT INFORMATION
  Report Type: 
  Country: US (occurrence: US)
  Receive Date: 20121218
  Receipt Date: 20121218
  Transmission Date: 20130627
  Serious: No
  Sender: FDA-Public Use
  Company Number: US-BRISTOL-MYERS SQUIBB COMPANY-16584021

PATIENT
  Age: 48 Year
  Sex: Female

DRUGS (5)
  1. ABILIFY [Suspect]
  2. LAMICTAL [Concomitant]
  3. SYNTHROID [Concomitant]
  4. DEPAKOTE [Concomitant]
  5. PHENYLBUTAZONE [Concomitant]

REACTIONS (2)
  - Cognitive disorder [Unknown]
  - Dysphemia [Unknown]
